FAERS Safety Report 15003330 (Version 2)
Quarter: 2018Q3

REPORT INFORMATION
  Report Type: Spontaneous
  Country: US (occurrence: US)
  Receive Date: 20180613
  Receipt Date: 20180717
  Transmission Date: 20181010
  Serious: No
  Sender: FDA-Public Use
  Company Number: US-TRIS PHARMA, INC-2018TRISPO00448

PATIENT

DRUGS (1)
  1. DYANAVEL XR [Suspect]
     Active Substance: AMPHETAMINE
     Indication: PRODUCT USED FOR UNKNOWN INDICATION
     Dosage: UNK
     Route: 065
     Dates: start: 201709

REACTIONS (6)
  - Drug effect decreased [Unknown]
  - Temperature intolerance [Unknown]
  - Emotional disorder [Recovering/Resolving]
  - Mood altered [Recovering/Resolving]
  - Flushing [Unknown]
  - Social avoidant behaviour [Recovering/Resolving]
